FAERS Safety Report 17451335 (Version 1)
Quarter: 2020Q1

REPORT INFORMATION
  Report Type: Spontaneous
  Country: US (occurrence: US)
  Receive Date: 20200223
  Receipt Date: 20200223
  Transmission Date: 20200409
  Serious: Yes (Other)
  Sender: FDA-Public Use
  Company Number: None

PATIENT
  Age: 35 Year
  Sex: Female
  Weight: 81 kg

DRUGS (20)
  1. LYRICA [Concomitant]
     Active Substance: PREGABALIN
  2. LYRICA [Concomitant]
     Active Substance: PREGABALIN
  3. ATORVASTATIN 10MG [Concomitant]
     Active Substance: ATORVASTATIN
  4. URIBEL [Concomitant]
     Active Substance: HYOSCYAMINE SULFATE\METHENAMINE\METHYLENE BLUE\PHENYL SALICYLATE\SODIUM PHOSPHATE, MONOBASIC, MONOHYDRATE
  5. VITAMIN D3 [Concomitant]
     Active Substance: CHOLECALCIFEROL
  6. IRON [Concomitant]
     Active Substance: IRON
  7. HYDROXYZINE 25MG [Concomitant]
  8. B12 INJECTIONS [Concomitant]
  9. BACLOFEN 10MG [Concomitant]
     Active Substance: BACLOFEN
  10. VITAMIN B COMPLEX [Concomitant]
     Active Substance: CYANOCOBALAMIN\DEXPANTHENOL\NIACINAMIDE\PYRIDOXINE HYDROCHLORIDE\RIBOFLAVIN 5^-PHOSPHATE SODIUM\THIAMINE HYDROCHLORIDE\VITAMIN B COMPLEX
  11. MARSHMALLOW ROOT [Concomitant]
  12. ALOE VERA GEL CAPSULES [Concomitant]
  13. DEXTROAMPHET SACCHARAT, AMPHET ASPARTATE, DEXTROAMPHET SULFATE AND AMPHET SULFAT [Suspect]
     Active Substance: AMPHETAMINE ASPARTATE\AMPHETAMINE SULFATE\DEXTROAMPHETAMINE SACCHARATE\DEXTROAMPHETAMINE SULFATE
     Indication: NARCOLEPSY
     Dosage: ?          QUANTITY:1 TABLET(S);?
     Route: 048
     Dates: start: 20200217
  14. AJOVY INJECTIONS 225MG [Concomitant]
  15. AZELASTINE 137 MG [Concomitant]
  16. NORLYDA 0.35MG [Concomitant]
  17. ORILISSA [Concomitant]
     Active Substance: ELAGOLIX SODIUM
  18. TRINTELLIX [Concomitant]
     Active Substance: VORTIOXETINE HYDROBROMIDE
  19. CYANOCOBALAMIN 1000MG [Concomitant]
  20. SINGULAIR [Concomitant]
     Active Substance: MONTELUKAST SODIUM

REACTIONS (5)
  - Blood pressure decreased [None]
  - Narcolepsy [None]
  - Feeling abnormal [None]
  - Drug ineffective [None]
  - Product substitution issue [None]

NARRATIVE: CASE EVENT DATE: 20200217
